FAERS Safety Report 21143228 (Version 2)
Quarter: 2022Q3

REPORT INFORMATION
  Report Type: Spontaneous
  Country: US (occurrence: US)
  Receive Date: 20220728
  Receipt Date: 20220810
  Transmission Date: 20221027
  Serious: Yes (Other)
  Sender: FDA-Public Use
  Company Number: US-TEVA-2022-US-2057814

PATIENT
  Age: 6 Decade
  Sex: Female

DRUGS (3)
  1. CIMETIDINE [Suspect]
     Active Substance: CIMETIDINE
     Indication: Papilloma conjunctival
     Dosage: 2400 MILLIGRAM DAILY;
     Route: 048
  2. FLUOROURACIL [Suspect]
     Active Substance: FLUOROURACIL
     Indication: Papilloma conjunctival
     Dosage: RECEIVED FLUOROURACIL 25MG/0.5ML, 2 WEEKS APART AND TOTAL OF 4 INJECTIONS
     Route: 050
  3. FLUOROURACIL [Suspect]
     Active Substance: FLUOROURACIL
     Indication: Papilloma conjunctival
     Dosage: RECEIVED FLUOROURACIL 4 TIMES DAILY FOR 2 WEEK INTERVALS WITH 2 WEEK SUSPENSION PERIODS
     Route: 061

REACTIONS (3)
  - Nausea [Unknown]
  - Conjunctivitis bacterial [Unknown]
  - Drug ineffective [Unknown]
